FAERS Safety Report 10154421 (Version 2)
Quarter: 2014Q2

REPORT INFORMATION
  Report Type: Spontaneous
  Country: US (occurrence: US)
  Receive Date: 20140506
  Receipt Date: 20140613
  Transmission Date: 20141212
  Serious: No
  Sender: FDA-Public Use
  Company Number: US-PFIZER INC-2014120919

PATIENT
  Age: 54 Year
  Sex: Female
  Weight: 99.77 kg

DRUGS (6)
  1. XELJANZ [Suspect]
     Indication: RHEUMATOID ARTHRITIS
     Dosage: 5 MG, TWICE DAILY
     Route: 048
     Dates: start: 201312
  2. LOSARTAN [Concomitant]
     Dosage: UNK
  3. FENOFIBRATE [Concomitant]
     Dosage: UNK
  4. LEVOTHYROXINE [Concomitant]
     Dosage: UNK
  5. ALEVE [Concomitant]
     Dosage: UNK
  6. FOLIC ACID [Concomitant]
     Dosage: UNK

REACTIONS (8)
  - Cough [Unknown]
  - Paranasal sinus hypersecretion [Unknown]
  - Headache [Unknown]
  - Ear pain [Unknown]
  - Pain in jaw [Unknown]
  - Sinusitis [Unknown]
  - Fatigue [Unknown]
  - Musculoskeletal stiffness [Unknown]
